FAERS Safety Report 8950276 (Version 1)
Quarter: 2012Q4

REPORT INFORMATION
  Report Type: 
  Country: CN (occurrence: CN)
  Receive Date: 20121205
  Receipt Date: 20121205
  Transmission Date: 20130627
  Serious: Yes (Other)
  Sender: FDA-Public Use
  Company Number: PHHY2012CN108349

PATIENT
  Age: 64 Year
  Sex: Male
  Weight: 60 kg

DRUGS (1)
  1. LOTENSIN [Suspect]
     Indication: PLEURISY
     Dosage: 10 mg, UNK
     Route: 048
     Dates: start: 20110520, end: 20110520

REACTIONS (11)
  - Respiratory depression [Recovering/Resolving]
  - Coma [Recovering/Resolving]
  - Dyspnoea [Recovering/Resolving]
  - Apnoea [Recovering/Resolving]
  - Oxygen saturation decreased [Recovering/Resolving]
  - Aphasia [Recovering/Resolving]
  - Cyanosis [Recovering/Resolving]
  - Oedema mucosal [Recovering/Resolving]
  - Jaw disorder [Recovering/Resolving]
  - Heart rate decreased [Recovering/Resolving]
  - Blood pressure decreased [Recovering/Resolving]
